FAERS Safety Report 8392709-2 (Version None)
Quarter: 2012Q2

REPORT INFORMATION
  Report Type: 
  Country: None (occurrence: None)
  Receive Date: 20120529
  Receipt Date: 20120522
  Transmission Date: 20120825
  Serious: Yes (Hospitalization, Other)
  Sender: FDA-Public Use
  Company Number: US-ELI_LILLY_AND_COMPANY-US201204009867

PATIENT
  Sex: Male

DRUGS (4)
  1. HUMALOG [Suspect]
     Indication: TYPE 2 DIABETES MELLITUS
     Dosage: SLIDING SCALE
     Route: 058
     Dates: start: 20060101
  2. HUMALOG [Suspect]
     Dosage: SLIDING SCALE
     Route: 058
  3. HUMALOG [Suspect]
     Indication: DIABETES MELLITUS
     Dosage: SLIDING SCALE
  4. HUMALOG [Suspect]
     Dosage: SLIDING SCALE

REACTIONS (5)
  - RENAL FAILURE [None]
  - BLOOD GLUCOSE INCREASED [None]
  - EXPIRED DRUG ADMINISTERED [None]
  - HOSPITALISATION [None]
  - GOUT [None]
